FAERS Safety Report 12897725 (Version 3)
Quarter: 2023Q2

REPORT INFORMATION
  Report Type: Report from Study
  Country: BR (occurrence: BR)
  Receive Date: 20161031
  Receipt Date: 20230418
  Transmission Date: 20230721
  Serious: Yes (Hospitalization)
  Sender: FDA-Public Use
  Company Number: BR-BIOGENIDEC-2015BI085930

PATIENT
  Age: 31 Year
  Sex: Female
  Weight: 80 kg

DRUGS (11)
  1. TYSABRI [Interacting]
     Active Substance: NATALIZUMAB
     Indication: Multiple sclerosis
     Route: 050
     Dates: start: 201002, end: 201405
  2. TYSABRI [Interacting]
     Active Substance: NATALIZUMAB
     Route: 050
     Dates: start: 201506
  3. TYSABRI [Interacting]
     Active Substance: NATALIZUMAB
     Route: 050
     Dates: start: 2010, end: 201408
  4. TYSABRI [Interacting]
     Active Substance: NATALIZUMAB
     Route: 050
     Dates: start: 201504
  5. VITAMIN D [Concomitant]
     Active Substance: VITAMIN D NOS
     Indication: Product used for unknown indication
     Route: 050
  6. MINERALS\VITAMINS [Concomitant]
     Active Substance: MINERALS\VITAMINS
     Indication: Product used for unknown indication
     Route: 050
  7. FOLIC ACID [Concomitant]
     Active Substance: FOLIC ACID
     Indication: Product used for unknown indication
     Route: 050
  8. FERROUS SULFATE [Concomitant]
     Active Substance: FERROUS SULFATE
     Indication: Product used for unknown indication
     Route: 050
  9. SERTRALINE [Concomitant]
     Active Substance: SERTRALINE HYDROCHLORIDE
     Indication: Anxiety
     Dosage: STARTED 7 YEARS AGO
     Route: 050
  10. FLUOXETINE [Concomitant]
     Active Substance: FLUOXETINE HYDROCHLORIDE
     Indication: Anxiety
     Route: 050
  11. PAROXETINE [Concomitant]
     Active Substance: PAROXETINE
     Indication: Perinatal depression
     Route: 050
     Dates: start: 2009, end: 2015

REACTIONS (2)
  - Premature labour [Recovered/Resolved]
  - Maternal exposure during pregnancy [Recovered/Resolved]

NARRATIVE: CASE EVENT DATE: 20150210
